FAERS Safety Report 6394684-9 (Version None)
Quarter: 2009Q4

REPORT INFORMATION
  Report Type: 
  Country: None (occurrence: None)
  Receive Date: 20091009
  Receipt Date: 20090925
  Transmission Date: 20100525
  Serious: Yes (Other)
  Sender: FDA-Public Use
  Company Number: PHEH2009US12499

PATIENT
  Sex: Male

DRUGS (1)
  1. EXJADE [Suspect]
     Dosage: 2500 MG DAILY
     Route: 048

REACTIONS (4)
  - ANXIETY [None]
  - DIARRHOEA [None]
  - DRUG ADMINISTRATION ERROR [None]
  - PANIC ATTACK [None]
